FAERS Safety Report 16425493 (Version 1)
Quarter: 2019Q2

REPORT INFORMATION
  Report Type: Spontaneous
  Country: US (occurrence: US)
  Receive Date: 20190613
  Receipt Date: 20190613
  Transmission Date: 20190711
  Serious: No
  Sender: FDA-Public Use
  Company Number: US-PFIZER INC-2019248284

PATIENT
  Age: 56 Year
  Sex: Female
  Weight: 62.6 kg

DRUGS (1)
  1. PREMPRO [Suspect]
     Active Substance: ESTROGENS, CONJUGATED\MEDROXYPROGESTERONE ACETATE
     Indication: MENOPAUSE
     Dosage: 1 DF, DAILY (ESTROGENS CONJUGATED: 0.625 MG / MEDROXYPROGESTERONE ACETATE: 2.5 MG)
     Dates: start: 2011

REACTIONS (2)
  - Night sweats [Unknown]
  - Menopausal symptoms [Unknown]
